FAERS Safety Report 21529097 (Version 1)
Quarter: 2022Q4

REPORT INFORMATION
  Report Type: Report from Study
  Country: CH (occurrence: CH)
  Receive Date: 20221031
  Receipt Date: 20221031
  Transmission Date: 20230113
  Serious: Yes (Death, Hospitalization, Other)
  Sender: FDA-Public Use
  Company Number: CH-NOVARTISPH-NVSC2021CH191175

PATIENT
  Age: 52 Year
  Sex: Female
  Weight: 92.1 kg

DRUGS (2)
  1. KISQALI [Suspect]
     Active Substance: RIBOCICLIB
     Indication: Breast cancer
     Dosage: 400 MG
     Route: 048
     Dates: start: 20210415, end: 20210901
  2. FULVESTRANT [Suspect]
     Active Substance: FULVESTRANT
     Indication: Breast cancer
     Dosage: 500 MG
     Route: 065
     Dates: start: 20210415, end: 20210901

REACTIONS (6)
  - Death [Fatal]
  - Cholecystitis [Recovering/Resolving]
  - Abdominal pain [Unknown]
  - Electrocardiogram QT prolonged [Recovered/Resolved]
  - Dysphagia [Recovering/Resolving]
  - Flushing [Not Recovered/Not Resolved]

NARRATIVE: CASE EVENT DATE: 20210429
